FAERS Safety Report 17637823 (Version 1)
Quarter: 2020Q2

REPORT INFORMATION
  Report Type: Spontaneous
  Country: US (occurrence: US)
  Receive Date: 20200405
  Receipt Date: 20200405
  Transmission Date: 20200713
  Serious: Yes (Hospitalization, Other)
  Sender: FDA-Public Use
  Company Number: None

PATIENT
  Age: 21 Year
  Sex: Female
  Weight: 48.6 kg

DRUGS (22)
  1. PANTOPRAZOLE [Concomitant]
     Active Substance: PANTOPRAZOLE
  2. DEKA [Concomitant]
  3. BISACODYL. [Concomitant]
     Active Substance: BISACODYL
  4. GUANFICINE ER [Concomitant]
  5. LOSARTIN [Concomitant]
     Active Substance: LOSARTAN
  6. TRIKAFTA [Suspect]
     Active Substance: ELEXACAFTOR\IVACAFTOR\TEZACAFTOR
     Indication: CYSTIC FIBROSIS
     Route: 048
     Dates: start: 20191109, end: 20191124
  7. HYOSCAMINE [Concomitant]
  8. CYPROHEPTADINE. [Concomitant]
     Active Substance: CYPROHEPTADINE
  9. ESSENTIALS CF VITAMINS [Concomitant]
  10. TRAZODONE [Concomitant]
     Active Substance: TRAZODONE HYDROCHLORIDE
  11. DORNASE ALFA (PULMOZYME) [Concomitant]
  12. AMITRIPTYLINE [Concomitant]
     Active Substance: AMITRIPTYLINE
  13. DEXMETHYLPHENIDATE XR [Concomitant]
     Active Substance: DEXMETHYLPHENIDATE HYDROCHLORIDE
  14. HYDROXYZINE PRN [Concomitant]
  15. CRESEMBA [Concomitant]
     Active Substance: ISAVUCONAZONIUM SULFATE
  16. PROMETHAZINE [Concomitant]
     Active Substance: PROMETHAZINE HYDROCHLORIDE
  17. XOPONEX 0.63% [Concomitant]
  18. ADVAIR DISKUS [Concomitant]
     Active Substance: FLUTICASONE PROPIONATE\SALMETEROL XINAFOATE
  19. MOTEGRITY [Concomitant]
     Active Substance: PRUCALOPRIDE SUCCINATE
  20. SINGULAIR [Concomitant]
     Active Substance: MONTELUKAST SODIUM
  21. GABAPENTIN. [Concomitant]
     Active Substance: GABAPENTIN
  22. GOLYTELY [Concomitant]
     Active Substance: POLYETHYLENE GLYCOL 3350\POTASSIUM CHLORIDE\SODIUM BICARBONATE\SODIUM CHLORIDE\SODIUM SULFATE ANHYDROUS

REACTIONS (7)
  - Aphasia [None]
  - Cognitive disorder [None]
  - Grip strength decreased [None]
  - Muscle atrophy [None]
  - Gait inability [None]
  - Muscular weakness [None]
  - Delirium [None]

NARRATIVE: CASE EVENT DATE: 20191115
